FAERS Safety Report 5536536-X (Version None)
Quarter: 2007Q4

REPORT INFORMATION
  Report Type: 
  Country: None (occurrence: None)
  Receive Date: 20071206
  Receipt Date: 20070927
  Transmission Date: 20080405
  Serious: Yes (Hospitalization)
  Sender: FDA-Public Use
  Company Number: US-AMGEN-QUU245415

PATIENT
  Sex: Female

DRUGS (3)
  1. ENBREL [Suspect]
     Indication: RHEUMATOID ARTHRITIS
     Route: 058
     Dates: start: 20000201
  2. METHOTREXATE [Concomitant]
     Dates: start: 19940101
  3. PLAQUENIL [Concomitant]
     Dates: start: 19870101

REACTIONS (3)
  - MUSCULOSKELETAL STIFFNESS [None]
  - PYELONEPHRITIS [None]
  - URINARY TRACT INFECTION [None]
